FAERS Safety Report 5465957-9 (Version None)
Quarter: 2007Q3

REPORT INFORMATION
  Report Type: 
  Country: None (occurrence: None)
  Receive Date: 20070924
  Receipt Date: 20070919
  Transmission Date: 20080115
  Serious: Yes (Hospitalization, Other)
  Sender: FDA-Public Use
  Company Number: GB-ALLERGAN-0710324US

PATIENT
  Sex: Female

DRUGS (1)
  1. DYSPORT [Suspect]
     Indication: SALIVARY HYPERSECRETION
     Dosage: UNK, SINGLE
     Route: 030
     Dates: start: 20070820, end: 20070820

REACTIONS (6)
  - DRY MOUTH [None]
  - DYSPHAGIA [None]
  - GAIT DISTURBANCE [None]
  - MUSCULAR WEAKNESS [None]
  - MYDRIASIS [None]
  - OVERDOSE [None]
